FAERS Safety Report 9079824 (Version 2)
Quarter: 2013Q1

REPORT INFORMATION
  Report Type: Report from Study
  Country: HU (occurrence: HU)
  Receive Date: 20130215
  Receipt Date: 20130321
  Transmission Date: 20140127
  Serious: Yes (Hospitalization)
  Sender: FDA-Public Use
  Company Number: HU-GLAXOSMITHKLINE-B0867144A

PATIENT
  Sex: Female

DRUGS (5)
  1. SERETIDE DISKUS [Suspect]
     Indication: ASTHMA
     Dosage: 500MG TWICE PER DAY
     Route: 055
     Dates: start: 201211
  2. RETAFYLLIN [Concomitant]
     Route: 065
     Dates: start: 201211
  3. SPIRIVA [Concomitant]
     Route: 065
  4. FOSTER [Concomitant]
     Route: 065
  5. VENTOLIN [Concomitant]
     Route: 065

REACTIONS (2)
  - Dyspnoea exertional [Not Recovered/Not Resolved]
  - Condition aggravated [Unknown]
